FAERS Safety Report 7069101-6 (Version None)
Quarter: 2010Q4

REPORT INFORMATION
  Report Type: 
  Country: None (occurrence: None)
  Receive Date: 20101020
  Receipt Date: 20101006
  Transmission Date: 20110411
  Serious: Yes (Hospitalization)
  Sender: FDA-Public Use
  Company Number: 2010GB0036

PATIENT
  Age: 5 Year
  Sex: Male

DRUGS (1)
  1. ORFADIN [Suspect]
     Indication: TYROSINAEMIA
     Dosage: 20 MG TOTAL DAILY DOSE (0,95 MG/KG,1 IN 1 D)
     Dates: start: 20040607

REACTIONS (2)
  - DIARRHOEA [None]
  - VOMITING [None]
